FAERS Safety Report 5026935-7 (Version None)
Quarter: 2006Q2

REPORT INFORMATION
  Report Type: 
  Country: None (occurrence: None)
  Receive Date: 20060609
  Receipt Date: 20060528
  Transmission Date: 20061013
  Serious: Yes (Other)
  Sender: FDA-Public Use
  Company Number: 2006EU001674

PATIENT
  Age: 58 Year
  Sex: Male

DRUGS (4)
  1. PROGRAF [Suspect]
     Indication: LUNG TRANSPLANT
  2. PREDNISONE [Suspect]
     Indication: LUNG TRANSPLANT
     Dosage: ORAL
     Route: 048
  3. MYCOPHENOLATE MOFETIL [Suspect]
     Dosage: 0.5 G, BID,
  4. TRIMETOPRIM + SULFAMETOXAZOL (SULFAMETOXAZOLE, TRIMETOPRIM) [Concomitant]

REACTIONS (1)
  - KAPOSI'S SARCOMA [None]
